FAERS Safety Report 8472889-0 (Version None)
Quarter: 2012Q2

REPORT INFORMATION
  Report Type: 
  Country: None (occurrence: None)
  Receive Date: 20120622
  Receipt Date: 20120622
  Transmission Date: 20120825
  Serious: Yes (Hospitalization, Disabling)
  Sender: FDA-Public Use
  Company Number: None

PATIENT
  Age: 49 Year
  Sex: Female
  Weight: 50.8029 kg

DRUGS (1)
  1. TAXOTERE [Suspect]
     Indication: BREAST CANCER
     Dosage: 119MG EVERY 3 WEEKS IV DRIP
     Route: 041

REACTIONS (5)
  - DECREASED APPETITE [None]
  - HYPOTENSION [None]
  - BRAIN INJURY [None]
  - INSOMNIA [None]
  - DEHYDRATION [None]
